FAERS Safety Report 16776659 (Version 1)
Quarter: 2019Q3

REPORT INFORMATION
  Report Type: Spontaneous
  Country: US (occurrence: US)
  Receive Date: 20190716
  Receipt Date: 20190716
  Transmission Date: 20191005
  Serious: Yes (Hospitalization)
  Sender: FDA-Public Use
  Company Number: None

PATIENT
  Age: 14 Year
  Sex: Female
  Weight: 69.52 kg

DRUGS (1)
  1. BINIMETINIB 15 MG [Suspect]
     Active Substance: BINIMETINIB
     Indication: NEUROFIBROMA
     Route: 048
     Dates: start: 20190328, end: 20190516

REACTIONS (5)
  - Anaemia [None]
  - Gastric ulcer [None]
  - Transfusion [None]
  - Haematemesis [None]
  - Upper gastrointestinal haemorrhage [None]

NARRATIVE: CASE EVENT DATE: 20190521
